FAERS Safety Report 11475681 (Version 3)
Quarter: 2015Q4

REPORT INFORMATION
  Report Type: Spontaneous
  Country: US (occurrence: US)
  Receive Date: 20150909
  Receipt Date: 20151026
  Transmission Date: 20160304
  Serious: No
  Sender: FDA-Public Use
  Company Number: US-AMGEN-USASP2015092195

PATIENT
  Age: 77 Year
  Sex: Female
  Weight: 86.17 kg

DRUGS (2)
  1. ENBREL [Suspect]
     Active Substance: ETANERCEPT
     Indication: SPONDYLOARTHROPATHY
     Dosage: 50 MG, QWK
     Route: 058
     Dates: start: 20150609
  2. ENBREL [Suspect]
     Active Substance: ETANERCEPT
     Indication: SPINAL OSTEOARTHRITIS

REACTIONS (5)
  - Drug dose omission [Unknown]
  - Musculoskeletal stiffness [Unknown]
  - Device issue [Unknown]
  - Bone pain [Unknown]
  - Drug ineffective [Unknown]

NARRATIVE: CASE EVENT DATE: 2015
